FAERS Safety Report 9566161 (Version 4)
Quarter: 2014Q2

REPORT INFORMATION
  Report Type: Spontaneous
  Country: US (occurrence: US)
  Receive Date: 20130930
  Receipt Date: 20140404
  Transmission Date: 20141212
  Serious: Yes (Death, Hospitalization)
  Sender: FDA-Public Use
  Company Number: US-B.I. PHARMACEUTICALS,INC./RIDGEFIELD-2013-BI-30515BP

PATIENT
  Age: 88 Year
  Sex: Male
  Weight: 73.48 kg

DRUGS (19)
  1. PRADAXA [Suspect]
     Indication: ANTICOAGULANT THERAPY
     Dosage: 300 MG
     Route: 048
     Dates: start: 20111222, end: 20120703
  2. CAPTOPRIL [Concomitant]
     Dosage: 50 MG
     Route: 048
     Dates: start: 20100130, end: 201207
  3. CARDURA [Concomitant]
     Dosage: 4 MG
     Route: 048
     Dates: start: 20100805, end: 201207
  4. LASIX [Concomitant]
     Dosage: 20 MG
     Route: 048
  5. KLOR-CON [Concomitant]
     Dosage: 10 MEQ
     Route: 048
  6. PRILOSEC [Concomitant]
     Dosage: 40 MG
     Route: 048
     Dates: start: 2009, end: 2012
  7. PROAIR HFA INHALER [Concomitant]
     Route: 055
     Dates: start: 2009, end: 2012
  8. PROCTOSOL-HCL CREAM [Concomitant]
     Route: 061
  9. DIGOXIN [Concomitant]
     Dosage: 125 MCG
     Route: 048
  10. LEVOFLOXACIN [Concomitant]
     Route: 065
  11. IRON [Concomitant]
     Dosage: 650 MG
     Route: 048
  12. ZINC OXIDE [Concomitant]
     Route: 065
  13. COLACE [Concomitant]
     Route: 048
  14. MIRALAX [Concomitant]
     Route: 048
  15. ALEVE [Concomitant]
     Indication: PAIN
     Route: 065
  16. DILTIAZEM HCL [Concomitant]
     Dosage: 300 MG
     Route: 048
  17. MULTIVITAMIN [Concomitant]
     Route: 048
  18. PRESERVISION [Concomitant]
     Route: 065
  19. TYLENOL EXTRA STRENGTH [Concomitant]
     Route: 065

REACTIONS (4)
  - Gastrointestinal haemorrhage [Fatal]
  - Gastrointestinal haemorrhage [Recovered/Resolved]
  - Lower gastrointestinal haemorrhage [Recovered/Resolved]
  - Haemorrhagic anaemia [Unknown]
